FAERS Safety Report 9000221 (Version 1)
Quarter: 2013Q1

REPORT INFORMATION
  Report Type: Spontaneous
  Country: US (occurrence: US)
  Receive Date: 20130102
  Receipt Date: 20130102
  Transmission Date: 20140127
  Serious: Yes (Hospitalization)
  Sender: FDA-Public Use
  Company Number: US-BAYER-2012-136253

PATIENT
  Age: 49 Year
  Sex: Male

DRUGS (2)
  1. AVELOX [Suspect]
     Indication: COUGH
     Dosage: 400 MG, UNK
     Route: 048
     Dates: start: 20121218
  2. XANAX [Concomitant]

REACTIONS (2)
  - Chest pain [None]
  - Oesophageal pain [None]
